FAERS Safety Report 9407462 (Version 1)
Quarter: 2013Q3

REPORT INFORMATION
  Report Type: Spontaneous
  Country: US (occurrence: None)
  Receive Date: 20130717
  Receipt Date: 20130717
  Transmission Date: 20140515
  Serious: Yes (Other)
  Sender: FDA-Public Use
  Company Number: None

PATIENT
  Age: 48 Year
  Sex: Female
  Weight: 63.05 kg

DRUGS (2)
  1. FLUOXETINE [Suspect]
     Indication: DEPRESSION
     Dosage: PO-047
     Route: 048
     Dates: start: 201110, end: 201203
  2. FLUOXETINE [Suspect]
     Indication: ANXIETY
     Dosage: PO-047
     Route: 048
     Dates: start: 201110, end: 201203

REACTIONS (6)
  - Abdominal distension [None]
  - Crying [None]
  - Migraine [None]
  - Therapeutic response unexpected with drug substitution [None]
  - Product substitution issue [None]
  - No therapeutic response [None]
